FAERS Safety Report 12691865 (Version 1)
Quarter: 2016Q3

REPORT INFORMATION
  Report Type: Spontaneous
  Country: BR (occurrence: BR)
  Receive Date: 20160827
  Receipt Date: 20160827
  Transmission Date: 20161109
  Serious: Yes (Other)
  Sender: FDA-Public Use
  Company Number: BR-ACCORD-043472

PATIENT
  Age: 62 Year
  Sex: Female
  Weight: 80 kg

DRUGS (12)
  1. PACLITAXEL/PACLITAXEL LIPOSOME [Suspect]
     Active Substance: PACLITAXEL
     Indication: CHEMOTHERAPY
     Dates: start: 20151216, end: 20160310
  2. CARBOPLATIN. [Suspect]
     Active Substance: CARBOPLATIN
     Indication: UTERINE CANCER
     Route: 042
     Dates: start: 20151216
  3. CAFFEINE/CODEINE PHOSPHATE/PARACETAMOL [Concomitant]
     Indication: ANALGESIC THERAPY
     Route: 048
     Dates: start: 20160428, end: 20160527
  4. DEXAMETHASONE. [Concomitant]
     Active Substance: DEXAMETHASONE
     Indication: PREMEDICATION
     Dosage: PT.ALSO RECEIVED DEXAMETHASONE 4 MG ORAL POST CHEMO FROM 03-MAY TO 05-MAY-2016
     Route: 042
     Dates: start: 20160502, end: 20160502
  5. RANITIDINE. [Concomitant]
     Active Substance: RANITIDINE
     Indication: PREMEDICATION
     Route: 042
     Dates: start: 20160502, end: 20160502
  6. ONDANSETRON [Concomitant]
     Active Substance: ONDANSETRON
     Indication: PREMEDICATION
     Dosage: PT. ALSO RECEIVED IV ONDANSETRONE 20 MG PRE CHEMO ON 02-MAY-2016
     Route: 048
     Dates: start: 20160428, end: 20160627
  7. ESCOPOLAMINE [Concomitant]
     Indication: CHEMOTHERAPY
     Route: 048
     Dates: start: 20160428, end: 20160527
  8. DIPHENHYDRAMINE. [Concomitant]
     Active Substance: DIPHENHYDRAMINE
     Indication: PREMEDICATION
     Route: 042
     Dates: start: 20160502, end: 20160502
  9. LACTULOSE. [Concomitant]
     Active Substance: LACTULOSE
     Indication: CHEMOTHERAPY
     Route: 048
     Dates: start: 20160428, end: 20160527
  10. GABAPENTIN. [Concomitant]
     Active Substance: GABAPENTIN
     Indication: CHEMOTHERAPY
     Route: 048
     Dates: start: 20160428, end: 20160527
  11. DIAZEPAM. [Concomitant]
     Active Substance: DIAZEPAM
     Indication: ANXIOLYTIC THERAPY
     Route: 048
     Dates: start: 20160428, end: 20160527
  12. OMEPRAZOLE. [Concomitant]
     Active Substance: OMEPRAZOLE
     Route: 048
     Dates: start: 20160428, end: 20160627

REACTIONS (3)
  - Neurotoxicity [Recovered/Resolved]
  - Chest discomfort [Recovered/Resolved]
  - Hyperaemia [Recovered/Resolved]

NARRATIVE: CASE EVENT DATE: 20160502
